FAERS Safety Report 7682757-X (Version None)
Quarter: 2011Q3

REPORT INFORMATION
  Report Type: 
  Country: None (occurrence: None)
  Receive Date: 20110815
  Receipt Date: 20110804
  Transmission Date: 20111222
  Serious: Yes (Other)
  Sender: FDA-Public Use
  Company Number: US-JNJFOC-20110804077

PATIENT
  Age: 55 Year
  Sex: Male
  Weight: 131.54 kg

DRUGS (2)
  1. DIPHENHYDRAMINE HCL [Suspect]
     Indication: MULTIPLE ALLERGIES
     Dosage: 2 TO 4 TABS TWICE DAILY
     Route: 048
     Dates: start: 20060804
  2. DIPHENHYDRAMINE HCL [Suspect]
     Route: 048

REACTIONS (5)
  - PRODUCT CONTAMINATION MICROBIAL [None]
  - DIARRHOEA HAEMORRHAGIC [None]
  - NAUSEA [None]
  - HEADACHE [None]
  - INCORRECT DOSE ADMINISTERED [None]
